FAERS Safety Report 12356646 (Version 7)
Quarter: 2018Q4

REPORT INFORMATION
  Report Type: Spontaneous
  Country: US (occurrence: US)
  Receive Date: 20160511
  Receipt Date: 20181212
  Transmission Date: 20190204
  Serious: Yes (Other)
  Sender: FDA-Public Use
  Company Number: US-ASTRAZENECA-2016SE48863

PATIENT
  Age: 791 Month
  Sex: Male

DRUGS (18)
  1. XGEVA [Suspect]
     Active Substance: DENOSUMAB
     Indication: PRODUCT USED FOR UNKNOWN INDICATION
     Route: 065
  2. METOPROLOL TARTRATE. [Suspect]
     Active Substance: METOPROLOL TARTRATE
     Route: 065
  3. LYNPARZA [Suspect]
     Active Substance: OLAPARIB
     Indication: NEOPLASM PROSTATE
     Route: 048
     Dates: start: 20180522, end: 20180915
  4. LOSARTAN. [Concomitant]
     Active Substance: LOSARTAN
     Route: 065
  5. LYNPARZA [Suspect]
     Active Substance: OLAPARIB
     Indication: NEOPLASM PROSTATE
     Route: 048
     Dates: start: 20180916
  6. LYNPARZA [Suspect]
     Active Substance: OLAPARIB
     Indication: NEOPLASM PROSTATE
     Dosage: 300 MG QAM
     Route: 048
  7. ATENOLOL. [Suspect]
     Active Substance: ATENOLOL
     Route: 065
  8. LYNPARZA [Suspect]
     Active Substance: OLAPARIB
     Indication: NEOPLASM PROSTATE
     Dosage: 150 MG HS
     Route: 048
  9. FENOFIBRATE. [Concomitant]
     Active Substance: FENOFIBRATE
     Route: 065
  10. OMEGA 3 [Concomitant]
     Active Substance: OMEGA-3 FATTY ACIDS
     Route: 065
  11. ASPIRIN. [Concomitant]
     Active Substance: ASPIRIN
  12. CRESTOR [Suspect]
     Active Substance: ROSUVASTATIN CALCIUM
     Indication: BLOOD CHOLESTEROL INCREASED
     Route: 048
  13. LYNPARZA [Suspect]
     Active Substance: OLAPARIB
     Indication: NEOPLASM PROSTATE
     Dosage: DOSE: 250MG QAM; 200MG QPM.
     Route: 048
  14. LYNPARZA [Suspect]
     Active Substance: OLAPARIB
     Indication: NEOPLASM PROSTATE
     Route: 048
  15. ENZALUTAMIDE [Suspect]
     Active Substance: ENZALUTAMIDE
     Indication: PROSTATE CANCER
     Route: 048
     Dates: start: 20150122
  16. LUPRON [Suspect]
     Active Substance: LEUPROLIDE ACETATE
     Indication: PRODUCT USED FOR UNKNOWN INDICATION
     Route: 065
  17. ZETIA [Concomitant]
     Active Substance: EZETIMIBE
     Route: 065
  18. LYNPARZA [Suspect]
     Active Substance: OLAPARIB
     Indication: NEOPLASM PROSTATE
     Dosage: 450MG IN THE MORNING AND 400MG IN THE EVENING (850 MG DAILY)
     Route: 048
     Dates: start: 20180522

REACTIONS (23)
  - Gastroenteritis norovirus [Not Recovered/Not Resolved]
  - Liver disorder [Not Recovered/Not Resolved]
  - Bursitis [Recovering/Resolving]
  - Prostate cancer [Unknown]
  - Gait disturbance [Not Recovered/Not Resolved]
  - Hot flush [Not Recovered/Not Resolved]
  - Bowel movement irregularity [Not Recovered/Not Resolved]
  - Tremor [Not Recovered/Not Resolved]
  - Bone pain [Not Recovered/Not Resolved]
  - Nasopharyngitis [Not Recovered/Not Resolved]
  - Metastases to pelvis [Unknown]
  - Bursitis [Recovering/Resolving]
  - Insomnia [Not Recovered/Not Resolved]
  - Intentional product misuse [Not Recovered/Not Resolved]
  - Metastases to bone [Unknown]
  - Metastases to spine [Unknown]
  - Malignant neoplasm progression [Not Recovered/Not Resolved]
  - Nausea [Not Recovered/Not Resolved]
  - Product use issue [Not Recovered/Not Resolved]
  - Decreased appetite [Recovering/Resolving]
  - Fatigue [Not Recovered/Not Resolved]
  - Anaemia [Not Recovered/Not Resolved]
  - Off label use [Unknown]

NARRATIVE: CASE EVENT DATE: 201206
